FAERS Safety Report 14480800 (Version 3)
Quarter: 2018Q1

REPORT INFORMATION
  Report Type: Spontaneous
  Country: CN (occurrence: CN)
  Receive Date: 20180202
  Receipt Date: 20180216
  Transmission Date: 20180509
  Serious: Yes (Other)
  Sender: FDA-Public Use
  Company Number: CN-ASTRAZENECA-2018SE12758

PATIENT
  Age: 87 Year
  Sex: Female

DRUGS (4)
  1. CHINESE TRADITIONAL MEDICINE NOS [Concomitant]
     Active Substance: UNSPECIFIED INGREDIENT
  2. TAGRISSO [Suspect]
     Active Substance: OSIMERTINIB
     Route: 048
  3. CHINESE TRADITIONAL MEDICINE NOS [Concomitant]
     Active Substance: UNSPECIFIED INGREDIENT
  4. IRESSA [Suspect]
     Active Substance: GEFITINIB
     Indication: LUNG NEOPLASM MALIGNANT
     Route: 048
     Dates: start: 201701, end: 201712

REACTIONS (9)
  - Metastases to spine [Unknown]
  - Lumbar vertebral fracture [Recovering/Resolving]
  - Osteosclerosis [Unknown]
  - Intervertebral disc protrusion [Unknown]
  - Pain in extremity [Recovering/Resolving]
  - Tumour marker increased [Unknown]
  - Inappropriate schedule of drug administration [Unknown]
  - Sleep disorder [Unknown]
  - Drug resistance [Unknown]

NARRATIVE: CASE EVENT DATE: 201711
